FAERS Safety Report 18262947 (Version 1)
Quarter: 2020Q3

REPORT INFORMATION
  Report Type: Spontaneous
  Country: US (occurrence: US)
  Receive Date: 20200914
  Receipt Date: 20200914
  Transmission Date: 20201103
  Serious: No
  Sender: FDA-Public Use
  Company Number: US-ASTRAZENECA-2020SF14800

PATIENT
  Sex: Female
  Weight: 66.2 kg

DRUGS (1)
  1. FASENRA [Suspect]
     Active Substance: BENRALIZUMAB
     Indication: ASTHMA
     Route: 058
     Dates: start: 20200827

REACTIONS (5)
  - Diarrhoea [Unknown]
  - Fatigue [Unknown]
  - Paraesthesia [Unknown]
  - Sensitive skin [Unknown]
  - Pharyngeal paraesthesia [Unknown]
